FAERS Safety Report 16742368 (Version 1)
Quarter: 2019Q3

REPORT INFORMATION
  Report Type: Spontaneous
  Country: US (occurrence: US)
  Receive Date: 20190826
  Receipt Date: 20190826
  Transmission Date: 20191005
  Serious: No
  Sender: FDA-Public Use
  Company Number: US-JNJFOC-20190823329

PATIENT
  Age: 85 Year
  Sex: Male

DRUGS (1)
  1. REMICADE [Suspect]
     Active Substance: INFLIXIMAB
     Indication: PRODUCT USED FOR UNKNOWN INDICATION
     Route: 042

REACTIONS (6)
  - Chills [Unknown]
  - Blood pressure increased [Unknown]
  - Wheezing [Recovering/Resolving]
  - Asthenia [Unknown]
  - Body temperature decreased [Unknown]
  - Infusion related reaction [Unknown]
